FAERS Safety Report 20101195 (Version 2)
Quarter: 2021Q4

REPORT INFORMATION
  Report Type: Spontaneous
  Country: JP (occurrence: JP)
  Receive Date: 20211123
  Receipt Date: 20211126
  Transmission Date: 20220303
  Serious: Yes (Other)
  Sender: FDA-Public Use
  Company Number: JP-Teva Takeda Yakuhin-2021-JP-005828J

PATIENT
  Age: 79 Year
  Sex: Male

DRUGS (17)
  1. ASPIRIN\LANSOPRAZOLE [Suspect]
     Active Substance: ASPIRIN\LANSOPRAZOLE
     Indication: Product used for unknown indication
     Dosage: UNK, QD
     Route: 048
     Dates: start: 201510
  2. ASPIRIN\LANSOPRAZOLE [Suspect]
     Active Substance: ASPIRIN\LANSOPRAZOLE
     Dosage: UNK
     Route: 048
     Dates: start: 20211117
  3. PLAVIX [Concomitant]
     Active Substance: CLOPIDOGREL BISULFATE
     Dosage: DOSAGE IS UNKNOWN
     Route: 050
     Dates: end: 202102
  4. AMLODIPINE BESYLATE [Concomitant]
     Active Substance: AMLODIPINE BESYLATE
     Dosage: UNK
     Route: 050
  5. FEBUXOSTAT [Concomitant]
     Active Substance: FEBUXOSTAT
     Dosage: UNK
     Route: 050
  6. JANUVIA [Concomitant]
     Active Substance: SITAGLIPTIN PHOSPHATE
     Dosage: UNK
     Route: 050
  7. REBAMIPIDE [Concomitant]
     Active Substance: REBAMIPIDE
     Dosage: DOSAGE IS UNKNOWN
     Route: 050
  8. AMARYL [Concomitant]
     Active Substance: GLIMEPIRIDE
     Dosage: DOSAGE IS UNKNOWN
     Route: 050
  9. FLUTICASONE FUROATE\VILANTEROL TRIFENATATE [Concomitant]
     Active Substance: FLUTICASONE FUROATE\VILANTEROL TRIFENATATE
     Dosage: IN THE MORNINGDOSAGE IS UNKNOWN
     Route: 050
  10. LIVALO [Concomitant]
     Active Substance: PITAVASTATIN CALCIUM
     Dosage: DOSAGE IS UNKNOWN
     Route: 050
  11. LIDOCAINE [Concomitant]
     Active Substance: LIDOCAINE
     Dosage: DOSAGE IS UNKNOWN
     Route: 050
  12. ROZEREM [Concomitant]
     Active Substance: RAMELTEON
     Dosage: DOSAGE IS UNKNOWN
     Route: 050
  13. BILASTINE [Concomitant]
     Active Substance: BILASTINE
     Dosage: DOSAGE IS UNKNOWN
     Route: 050
  14. RILMAZAFONE HYDROCHLORIDE [Concomitant]
     Active Substance: RILMAZAFONE HYDROCHLORIDE
     Dosage: DOSAGE IS UNKNOWN
     Route: 050
  15. PRANLUKAST [Concomitant]
     Active Substance: PRANLUKAST
     Dosage: DOSAGE IS UNKNOWN
     Route: 050
  16. DIFLORASONE DIACETATE [Concomitant]
     Active Substance: DIFLORASONE DIACETATE
     Dosage: ONCE TO SEVERAL TIMES A DAYDOSAGE IS UNKNOWN
     Route: 050
  17. FERROUS SULFATE [Concomitant]
     Active Substance: FERROUS SULFATE
     Dosage: DOSAGE IS UNKNOWN
     Route: 048

REACTIONS (3)
  - Colon cancer [Unknown]
  - Haemorrhage [Unknown]
  - Product use issue [Unknown]
